FAERS Safety Report 25571067 (Version 2)
Quarter: 2025Q4

REPORT INFORMATION
  Report Type: Spontaneous
  Country: EU (occurrence: EU)
  Receive Date: 20250717
  Receipt Date: 20251229
  Transmission Date: 20260117
  Serious: Yes (Death, Other)
  Sender: AMGEN
  Company Number: EU-AMGEN-FRASP2025138583

PATIENT

DRUGS (2)
  1. PANITUMUMAB [Suspect]
     Active Substance: PANITUMUMAB
     Indication: Colorectal cancer metastatic
     Dosage: 6 MILLIGRAM/KILOGRAM, Q2WK
     Route: 040
  2. ENCORAFENIB [Suspect]
     Active Substance: ENCORAFENIB
     Indication: Colorectal cancer metastatic
     Dosage: UNK, QD, STD. DOSE OF 300 MG DAILY PER OS. ONE PATIENT STARTED WITH A REDUCED DOSE OF 150 MG DAILY
     Route: 065

REACTIONS (11)
  - Death [Fatal]
  - Colorectal cancer metastatic [Unknown]
  - Rash [Unknown]
  - Diarrhoea [Unknown]
  - Nausea [Unknown]
  - Hepatic enzyme increased [Unknown]
  - Asthenia [Unknown]
  - Hypomagnesaemia [Unknown]
  - Arthralgia [Unknown]
  - Off label use [Unknown]
  - Therapy partial responder [Unknown]
